FAERS Safety Report 8247815-X (Version None)
Quarter: 2012Q1

REPORT INFORMATION
  Report Type: 
  Country: None (occurrence: None)
  Receive Date: 20120330
  Receipt Date: 20120323
  Transmission Date: 20120608
  Serious: Yes (Hospitalization)
  Sender: FDA-Public Use
  Company Number: FR-PFIZER INC-2012075882

PATIENT
  Age: 63 Year
  Sex: Male

DRUGS (17)
  1. MORPHINE SULFATE [Concomitant]
     Dosage: 10 MG, 2X/DAY
  2. SPIRIVA [Concomitant]
     Dosage: 18 UG, 1X/DAY
  3. ZYVOX [Suspect]
     Indication: STAPHYLOCOCCAL INFECTION
     Dosage: 600 MG, 2X/DAY
     Route: 048
     Dates: start: 20111219, end: 20120113
  4. ZOLPIDEM [Concomitant]
     Dosage: 10 MG, 1X/DAY
  5. LANTUS [Concomitant]
     Dosage: 30 IU DAILY
  6. ALPRAZOLAM [Concomitant]
     Dosage: 0.25 MG/DAY AS NEEDED
  7. ACETAMINOPHEN [Concomitant]
     Dosage: 3000 MG,DAILY
  8. VITAMIN B1 AND B6 [Concomitant]
     Dosage: 4 TABLETS DAILY
     Route: 048
  9. UMULINE [Concomitant]
     Dosage: 1 IU, 3X/DAY AS NEEDED
  10. HALDOL [Concomitant]
     Dosage: 2 DROPS IN THE MORNING AND AT NOON AND 5 DROPS IN THE EVENING
  11. FERROUS FUMARATE [Concomitant]
     Dosage: 132 MG, DAILY
  12. OXYCODONE HYDROCHLORIDE [Concomitant]
     Dosage: 5 MG 6X/DAY MAXIMUM
     Route: 048
  13. METOPROLOL TARTRATE [Concomitant]
     Dosage: 50 MG, 1X/DAY
  14. VALIUM [Concomitant]
     Dosage: 1 TABLET 4X/DAY MAXIMUM AS NEEDED
     Route: 048
  15. FOLIC ACID [Concomitant]
     Dosage: 5 MG, 1X/DAY
  16. TRANSIPEG [Concomitant]
     Dosage: 11.8 G, DAILY
  17. CALCIPARINE [Concomitant]
     Dosage: 0.20 ML, 2X/DAY
     Route: 058

REACTIONS (2)
  - PANCYTOPENIA [None]
  - ECZEMA [None]
